FAERS Safety Report 20035130 (Version 3)
Quarter: 2021Q4

REPORT INFORMATION
  Report Type: Report from Study
  Country: MY (occurrence: MY)
  Receive Date: 20211104
  Receipt Date: 20211207
  Transmission Date: 20220303
  Serious: Yes (Hospitalization)
  Sender: FDA-Public Use
  Company Number: MY-JNJFOC-20211060132

PATIENT
  Age: 61 Year
  Sex: Male

DRUGS (1)
  1. ESKETAMINE [Suspect]
     Active Substance: ESKETAMINE
     Indication: Depression
     Dosage: MOST RECENT DOSE -22-OCT-2021
     Dates: start: 20170726

REACTIONS (1)
  - Intervertebral disc protrusion [Recovered/Resolved with Sequelae]

NARRATIVE: CASE EVENT DATE: 20211024
